FAERS Safety Report 18169603 (Version 2)
Quarter: 2020Q3

REPORT INFORMATION
  Report Type: Spontaneous
  Country: US (occurrence: US)
  Receive Date: 20200818
  Receipt Date: 20200917
  Transmission Date: 20201103
  Serious: Yes (Other)
  Sender: FDA-Public Use
  Company Number: US-B.I. PHARMACEUTICALS,INC./RIDGEFIELD-2020-US-041867

PATIENT

DRUGS (1)
  1. SPIRIVA [Suspect]
     Active Substance: TIOTROPIUM BROMIDE MONOHYDRATE
     Indication: EMPHYSEMA
     Dosage: 1 CAPSULE QD
     Dates: start: 2017

REACTIONS (3)
  - Fatigue [Not Recovered/Not Resolved]
  - Total lung capacity abnormal [Not Recovered/Not Resolved]
  - Lung carcinoma cell type unspecified stage III [Unknown]
